FAERS Safety Report 16245282 (Version 1)
Quarter: 2019Q2

REPORT INFORMATION
  Report Type: Spontaneous
  Country: SE (occurrence: SE)
  Receive Date: 20190426
  Receipt Date: 20190426
  Transmission Date: 20190711
  Serious: Yes (Other)
  Sender: FDA-Public Use
  Company Number: SE-TEVA-2019-SE-1041882

PATIENT
  Age: 85 Year
  Sex: Female

DRUGS (1)
  1. ZERLINDA 4 MG/100 ML INFUSIONSV?TSKA, L?SNING [Suspect]
     Active Substance: ZOLEDRONIC ACID
     Indication: OSTEOPOROSIS
     Dosage: 4 MG/100 ML 5 MG = 125 ML
     Route: 042
     Dates: start: 20190307, end: 20190307

REACTIONS (3)
  - Pharyngeal swelling [Recovered/Resolved]
  - Palpitations [Recovered/Resolved]
  - Influenza like illness [Recovered/Resolved]

NARRATIVE: CASE EVENT DATE: 20190309
